FAERS Safety Report 15730187 (Version 1)
Quarter: 2018Q4

REPORT INFORMATION
  Report Type: Spontaneous
  Country: SG (occurrence: SG)
  Receive Date: 20181217
  Receipt Date: 20181217
  Transmission Date: 20190205
  Serious: Yes (Other)
  Sender: FDA-Public Use
  Company Number: SG-SAKK-2018SA336992AA

PATIENT
  Age: 40 Year
  Sex: Female

DRUGS (2)
  1. METHOTREXATE. [Concomitant]
     Active Substance: METHOTREXATE
     Dosage: 15 MG, UNK
     Route: 065
  2. LEFLUNOMIDE. [Suspect]
     Active Substance: LEFLUNOMIDE
     Route: 065

REACTIONS (3)
  - Mucosal ulceration [Unknown]
  - Myopathy [Unknown]
  - Pyrexia [Unknown]

NARRATIVE: CASE EVENT DATE: 20180815
